FAERS Safety Report 21220303 (Version 1)
Quarter: 2022Q3

REPORT INFORMATION
  Report Type: Spontaneous
  Country: US (occurrence: US)
  Receive Date: 20220817
  Receipt Date: 20220817
  Transmission Date: 20221026
  Serious: No
  Sender: FDA-Public Use
  Company Number: US-TEVA-2022-US-2062749

PATIENT
  Sex: Female

DRUGS (7)
  1. AUSTEDO [Suspect]
     Active Substance: DEUTETRABENAZINE
     Indication: Tardive dyskinesia
     Route: 065
  2. SEROQUEL [Concomitant]
     Active Substance: QUETIAPINE FUMARATE
     Indication: Hallucination
  3. SEROQUEL [Concomitant]
     Active Substance: QUETIAPINE FUMARATE
     Indication: Bipolar disorder
  4. SEROQUEL [Concomitant]
     Active Substance: QUETIAPINE FUMARATE
     Indication: Attention deficit hyperactivity disorder
  5. LITHIUM [Concomitant]
     Active Substance: LITHIUM
     Indication: Bipolar disorder
  6. LITHIUM [Concomitant]
     Active Substance: LITHIUM
     Indication: Hallucination
  7. LITHIUM [Concomitant]
     Active Substance: LITHIUM
     Indication: Attention deficit hyperactivity disorder

REACTIONS (1)
  - Drug ineffective [Unknown]
